FAERS Safety Report 16460331 (Version 1)
Quarter: 2019Q2

REPORT INFORMATION
  Report Type: Spontaneous
  Country: CA (occurrence: CA)
  Receive Date: 20190620
  Receipt Date: 20190620
  Transmission Date: 20190711
  Serious: Yes (Death, Hospitalization, Other)
  Sender: FDA-Public Use
  Company Number: CA-TEVA-2019-CA-1066420

PATIENT
  Age: 40 Month
  Sex: Male

DRUGS (5)
  1. PRIMIDONE. [Concomitant]
     Active Substance: PRIMIDONE
     Indication: PARTIAL SEIZURES
  2. CARBAMAZEPINE. [Concomitant]
     Active Substance: CARBAMAZEPINE
     Indication: PARTIAL SEIZURES
  3. ETHOSUXIMIDE. [Concomitant]
     Active Substance: ETHOSUXIMIDE
     Indication: PARTIAL SEIZURES
  4. VALPROIC ACID. [Suspect]
     Active Substance: VALPROIC ACID
     Indication: PARTIAL SEIZURES
     Route: 065
  5. PHENYTOIN. [Concomitant]
     Active Substance: PHENYTOIN
     Indication: PARTIAL SEIZURES

REACTIONS (6)
  - Intracranial pressure increased [Fatal]
  - Unresponsive to stimuli [Fatal]
  - Reye^s syndrome [Fatal]
  - Aspartate aminotransferase increased [Fatal]
  - Hepatic failure [Fatal]
  - Drug ineffective [Fatal]
